FAERS Safety Report 9363754 (Version 3)
Quarter: 2014Q2

REPORT INFORMATION
  Report Type: Spontaneous
  Country: US (occurrence: US)
  Receive Date: 20130624
  Receipt Date: 20140502
  Transmission Date: 20141212
  Serious: Yes (Other)
  Sender: FDA-Public Use
  Company Number: US-JNJFOC-20130607895

PATIENT
  Sex: 0

DRUGS (5)
  1. INFLIXIMAB, RECOMBINANT [Suspect]
     Indication: CROHN^S DISEASE
     Route: 042
  2. CORTICOSTEROIDS [Concomitant]
     Route: 065
  3. AZATHIOPRINE [Concomitant]
     Route: 065
  4. 6-MERCAPTOPURINE [Concomitant]
     Route: 065
  5. METHOTREXATE [Concomitant]
     Route: 065

REACTIONS (6)
  - Lupus-like syndrome [Unknown]
  - Rash [Unknown]
  - Therapeutic response decreased [Unknown]
  - Drug ineffective [Unknown]
  - Infusion related reaction [Unknown]
  - Type IV hypersensitivity reaction [Unknown]
